FAERS Safety Report 8497451-5 (Version None)
Quarter: 2012Q3

REPORT INFORMATION
  Report Type: 
  Country: None (occurrence: None)
  Receive Date: 20120709
  Receipt Date: 20120612
  Transmission Date: 20120928
  Serious: No
  Sender: FDA-Public Use
  Company Number: US-AMGEN-USASP2012036464

PATIENT
  Age: 49 Year
  Sex: Female

DRUGS (2)
  1. ENBREL [Suspect]
     Indication: RHEUMATOID ARTHRITIS
     Dosage: 50 MG, QWK
     Dates: start: 20020901
  2. PREDNISONE [Concomitant]
     Dosage: UNK

REACTIONS (6)
  - NECK PAIN [None]
  - PAIN IN EXTREMITY [None]
  - PAIN [None]
  - DIABETES MELLITUS [None]
  - BONE PAIN [None]
  - GLAUCOMA [None]
